FAERS Safety Report 9832512 (Version 3)
Quarter: 2014Q1

REPORT INFORMATION
  Report Type: Spontaneous
  Country: FR (occurrence: FR)
  Receive Date: 20140121
  Receipt Date: 20140224
  Transmission Date: 20141002
  Serious: Yes (Hospitalization)
  Sender: FDA-Public Use
  Company Number: FR-PFIZER INC-2014017560

PATIENT
  Age: 86 Year
  Sex: Male
  Weight: 80 kg

DRUGS (6)
  1. CORDARONE [Suspect]
     Dosage: 600 MG, DAILY
     Route: 048
     Dates: start: 20131112
  2. CORDARONE [Suspect]
     Dosage: 200 MG DAY AT MIDDAY
     Route: 048
  3. PRADAXA [Concomitant]
     Dosage: UNK
  4. PRAVASTATINE [Concomitant]
     Dosage: UNK
  5. ACEBUTOLOL [Concomitant]
     Dosage: UNK
  6. AMLOR [Concomitant]
     Dosage: UNK

REACTIONS (1)
  - Balance disorder [Not Recovered/Not Resolved]
